FAERS Safety Report 8058100-3 (Version None)
Quarter: 2012Q1

REPORT INFORMATION
  Report Type: 
  Country: None (occurrence: None)
  Receive Date: 20120118
  Receipt Date: 20120118
  Transmission Date: 20120608
  Serious: Yes (Death, Other)
  Sender: FDA-Public Use
  Company Number: None

PATIENT
  Age: 84 Year
  Sex: Male

DRUGS (1)
  1. REVLIMID [Suspect]
     Indication: MULTIPLE MYELOMA
     Dosage: 5MG QDX21D/28D ORALLY
     Route: 048
     Dates: start: 20101201, end: 20110401

REACTIONS (5)
  - DIALYSIS [None]
  - MULTI-ORGAN DISORDER [None]
  - ATRIAL FIBRILLATION [None]
  - SEPTIC SHOCK [None]
  - SEPSIS [None]
